FAERS Safety Report 10428077 (Version 1)
Quarter: 2014Q3

REPORT INFORMATION
  Report Type: Spontaneous
  Country: US (occurrence: US)
  Receive Date: 20140903
  Receipt Date: 20140903
  Transmission Date: 20150326
  Serious: No
  Sender: FDA-Public Use
  Company Number: US-GILEAD-2014-0113803

PATIENT
  Age: 61 Year
  Sex: Female

DRUGS (1)
  1. LETAIRIS [Suspect]
     Active Substance: AMBRISENTAN
     Indication: PRODUCT USED FOR UNKNOWN INDICATION
     Dosage: 5 MG, QD
     Dates: start: 201408

REACTIONS (6)
  - Eye movement disorder [Unknown]
  - Headache [Unknown]
  - Vulvovaginal swelling [Unknown]
  - Oedema peripheral [Unknown]
  - Feeling abnormal [Unknown]
  - Discomfort [Unknown]
